FAERS Safety Report 19142672 (Version 1)
Quarter: 2021Q2

REPORT INFORMATION
  Report Type: Spontaneous
  Country: CZ (occurrence: CZ)
  Receive Date: 20210416
  Receipt Date: 20210416
  Transmission Date: 20210717
  Serious: Yes (Other)
  Sender: FDA-Public Use
  Company Number: CZ-AUROBINDO-AUR-APL-2021-015314

PATIENT
  Sex: Female

DRUGS (3)
  1. SUMATRIPTAN. [Suspect]
     Active Substance: SUMATRIPTAN
     Indication: MIGRAINE
     Dosage: UNK
     Route: 065
  2. INDOMETACIN [Suspect]
     Active Substance: INDOMETHACIN
     Indication: PAIN
     Dosage: UNK
     Route: 065
  3. ERENUMAB [Concomitant]
     Active Substance: ERENUMAB
     Indication: MIGRAINE
     Dosage: 2 INJECTIONS
     Route: 065

REACTIONS (1)
  - Narcolepsy [Unknown]
